FAERS Safety Report 5124535-1 (Version None)
Quarter: 2006Q3

REPORT INFORMATION
  Report Type: 
  Country: None (occurrence: None)
  Receive Date: 20060821
  Receipt Date: 20060713
  Transmission Date: 20061208
  Serious: No
  Sender: FDA-Public Use
  Company Number: TPA2006A01126

PATIENT
  Age: 55 Year
  Sex: Female
  Weight: 69.4003 kg

DRUGS (7)
  1. ROZEREM [Suspect]
     Indication: INITIAL INSOMNIA
     Dosage: 8 MG, HS, PER ORAL
     Route: 048
     Dates: start: 20060615, end: 20060618
  2. ROZEREM [Suspect]
     Indication: MIDDLE INSOMNIA
     Dosage: 8 MG, HS, PER ORAL
     Route: 048
     Dates: start: 20060615, end: 20060618
  3. TRICOR (FENOFIBRATE) (145 MILLIGRAM) [Concomitant]
  4. PRAVASTATIN (PRAVASTATIN) (20 MILLIGRAM) [Concomitant]
  5. METFORMIN (METFORMIN) (500 MILLIGRAM) [Concomitant]
  6. PROZAC (FLUOXETINE HYDROCHLORIDE) (10 MILLIGRAM) [Concomitant]
  7. PREMPRO [Concomitant]

REACTIONS (2)
  - DRUG INEFFECTIVE [None]
  - INITIAL INSOMNIA [None]
